FAERS Safety Report 17364799 (Version 1)
Quarter: 2020Q1

REPORT INFORMATION
  Report Type: Other
  Country: IN (occurrence: US)
  Receive Date: 20200204
  Receipt Date: 20200204
  Transmission Date: 20200409
  Serious: Yes (Hospitalization, Other)
  Sender: FDA-Public Use
  Company Number: US-DEXPHARM-20200065

PATIENT
  Age: 45 Year
  Sex: Female

DRUGS (13)
  1. FEXOFENADINE [Concomitant]
     Active Substance: FEXOFENADINE HYDROCHLORIDE
  2. PROPOXYPHENE. [Concomitant]
     Active Substance: PROPOXYPHENE
  3. ALENDRONATE [Concomitant]
     Active Substance: ALENDRONATE SODIUM
  4. METHIMAZOL [Concomitant]
  5. METHIMAZOLE. [Suspect]
     Active Substance: METHIMAZOLE
  6. OXYGEN. [Concomitant]
     Active Substance: OXYGEN
  7. LEVETIRACETAM. [Suspect]
     Active Substance: LEVETIRACETAM
     Indication: PARTIAL SEIZURES
  8. LEVETIRACETAM. [Suspect]
     Active Substance: LEVETIRACETAM
     Indication: PARTIAL SEIZURES
  9. IPRATROPIUM AND ALBUTEROL INHALATION SOLUTION [Concomitant]
  10. PANTOPRAZOLE [Concomitant]
     Active Substance: PANTOPRAZOLE
  11. REGULAR INSULIN [Concomitant]
     Active Substance: INSULIN NOS
     Dosage: SLIDING SCALE DOSED REGULAR INSULIN
  12. ATENOLOL. [Concomitant]
     Active Substance: ATENOLOL
  13. ACETAMINOPHEN. [Concomitant]
     Active Substance: ACETAMINOPHEN
     Indication: PAIN
     Dosage: EVERY 6 TO 8 HOURS AS NEEDED

REACTIONS (2)
  - Acute generalised exanthematous pustulosis [Recovered/Resolved]
  - Rash [Recovered/Resolved]
